FAERS Safety Report 24580240 (Version 1)
Quarter: 2024Q4

REPORT INFORMATION
  Report Type: Spontaneous
  Country: IT (occurrence: IT)
  Receive Date: 20241105
  Receipt Date: 20241105
  Transmission Date: 20250115
  Serious: Yes (Other)
  Sender: CELLTRION
  Company Number: IT-PFIZER INC-PV202400057280

PATIENT

DRUGS (3)
  1. RITUXIMAB [Suspect]
     Active Substance: RITUXIMAB
     Indication: Endocrine ophthalmopathy
     Dosage: 500 MG, SINGLE
     Route: 042
  2. METHIMAZOLE [Concomitant]
     Active Substance: METHIMAZOLE
     Indication: Endocrine ophthalmopathy
  3. LEVOTHYROXINE [Concomitant]
     Active Substance: LEVOTHYROXINE
     Indication: Endocrine ophthalmopathy

REACTIONS (3)
  - Lymphocyte count decreased [Unknown]
  - Drug effective for unapproved indication [Unknown]
  - Off label use [Unknown]
